FAERS Safety Report 21508204 (Version 2)
Quarter: 2025Q3

REPORT INFORMATION
  Report Type: Spontaneous
  Country: AU (occurrence: AU)
  Receive Date: 20221026
  Receipt Date: 20250926
  Transmission Date: 20251021
  Serious: Yes (Hospitalization)
  Sender: DOUGLAS PHARMACEUTICALS
  Company Number: AU-TASMAN PHARMA, INC.-2022TSM00135

PATIENT
  Sex: Male

DRUGS (16)
  1. VERSACLOZ [Suspect]
     Active Substance: CLOZAPINE
     Dates: start: 20220613, end: 20220626
  2. CLOZAPINE [Suspect]
     Active Substance: CLOZAPINE
     Dates: start: 20220605, end: 20220612
  3. CLOZAPINE [Suspect]
     Active Substance: CLOZAPINE
     Dates: start: 20250911
  4. CLOZAPINE [Suspect]
     Active Substance: CLOZAPINE
     Dates: start: 20220627, end: 20221005
  5. CLOZAPINE [Suspect]
     Active Substance: CLOZAPINE
     Dates: start: 20221006, end: 20221016
  6. CLOZAPINE [Suspect]
     Active Substance: CLOZAPINE
     Dates: start: 20221017, end: 20221026
  7. CLOZAPINE [Suspect]
     Active Substance: CLOZAPINE
     Dates: start: 20221027, end: 20230321
  8. CLOZAPINE [Suspect]
     Active Substance: CLOZAPINE
     Dates: start: 20230322, end: 20250910
  9. CLOZAPINE [Suspect]
     Active Substance: CLOZAPINE
     Route: 048
     Dates: start: 20221004, end: 20221004
  10. CLOZAPINE [Suspect]
     Active Substance: CLOZAPINE
     Dosage: 25 MG, 2X/DAY
     Route: 048
     Dates: start: 20221005, end: 20221005
  11. CLOZAPINE [Suspect]
     Active Substance: CLOZAPINE
     Route: 048
     Dates: start: 20221006, end: 20221006
  12. CLOZAPINE [Suspect]
     Active Substance: CLOZAPINE
     Route: 048
     Dates: start: 20221007, end: 20221007
  13. CLOZAPINE [Suspect]
     Active Substance: CLOZAPINE
     Route: 048
     Dates: start: 20221008, end: 20221008
  14. CLOZAPINE [Suspect]
     Active Substance: CLOZAPINE
     Route: 048
     Dates: start: 20221009, end: 20221009
  15. CLOZAPINE [Suspect]
     Active Substance: CLOZAPINE
     Route: 048
     Dates: start: 20221010, end: 20221010
  16. LITHIUM [Suspect]
     Active Substance: LITHIUM

REACTIONS (3)
  - Hospitalisation [Unknown]
  - Antipsychotic drug level decreased [Unknown]
  - Treatment noncompliance [Unknown]

NARRATIVE: CASE EVENT DATE: 20220930
